FAERS Safety Report 9493136 (Version 2)
Quarter: 2013Q3

REPORT INFORMATION
  Report Type: Spontaneous
  Country: US (occurrence: US)
  Receive Date: 20130902
  Receipt Date: 20130902
  Transmission Date: 20140515
  Serious: Yes (Hospitalization, Other)
  Sender: FDA-Public Use
  Company Number: US-009507513-2012SP023357

PATIENT
  Sex: Male

DRUGS (2)
  1. VICTRELIS [Suspect]
     Dosage: 800 MG, TID
     Route: 048
     Dates: start: 20110828
  2. PEGASYS [Suspect]
     Indication: PRODUCT USED FOR UNKNOWN INDICATION
     Dosage: 180 MICROGRAM, QW
     Route: 058
     Dates: start: 20110802

REACTIONS (5)
  - Infection [Unknown]
  - Sepsis [Unknown]
  - Arrhythmia [Unknown]
  - White blood cell count decreased [Unknown]
  - Platelet count decreased [Unknown]
